FAERS Safety Report 10220987 (Version 1)
Quarter: 2014Q2

REPORT INFORMATION
  Report Type: Report from Study
  Country: US (occurrence: US)
  Receive Date: 20140606
  Receipt Date: 20140606
  Transmission Date: 20141212
  Serious: Yes (Other)
  Sender: FDA-Public Use
  Company Number: US-JNJFOC-20140519860

PATIENT
  Sex: Female
  Weight: 82.56 kg

DRUGS (4)
  1. REMICADE [Suspect]
     Indication: COLITIS
     Route: 042
     Dates: start: 2011
  2. REMICADE [Suspect]
     Indication: ANKYLOSING SPONDYLITIS
     Route: 042
     Dates: start: 2011
  3. REMICADE [Suspect]
     Indication: REITER^S SYNDROME
     Route: 042
     Dates: start: 2011
  4. LISINOPRIL [Concomitant]
     Indication: BLOOD PRESSURE
     Dosage: DAILY
     Route: 048
     Dates: start: 2000

REACTIONS (5)
  - Fibromyalgia [Not Recovered/Not Resolved]
  - Sinusitis [Recovering/Resolving]
  - Arthritis reactive [Not Recovered/Not Resolved]
  - Off label use [Unknown]
  - Multiple allergies [Unknown]
